FAERS Safety Report 4778863-X (Version None)
Quarter: 2005Q3

REPORT INFORMATION
  Report Type: 
  Country: None (occurrence: None)
  Receive Date: 20050922
  Receipt Date: 20050915
  Transmission Date: 20060218
  Serious: Yes (Other)
  Sender: FDA-Public Use
  Company Number: 2005-09-0869

PATIENT
  Age: 36 Year
  Sex: Male

DRUGS (1)
  1. CLARINEX [Suspect]
     Dosage: 1 TAB QD ORAL

REACTIONS (5)
  - ANXIETY [None]
  - INSOMNIA [None]
  - PANIC REACTION [None]
  - RESTLESSNESS [None]
  - THINKING ABNORMAL [None]
